FAERS Safety Report 5889502-9 (Version None)
Quarter: 2008Q3

REPORT INFORMATION
  Report Type: 
  Country: None (occurrence: None)
  Receive Date: 20080919
  Receipt Date: 20080908
  Transmission Date: 20090109
  Serious: Yes (Other)
  Sender: FDA-Public Use
  Company Number: FR-ELI_LILLY_AND_COMPANY-FR200809001549

PATIENT
  Age: 39 Year
  Sex: Female

DRUGS (3)
  1. GEMZAR [Suspect]
     Dosage: UNK, DAY 1 AND 8
     Route: 042
     Dates: start: 20061020, end: 20071023
  2. TAXOL [Concomitant]
     Dosage: UNK, WEEKLY (1/W)
     Route: 042
     Dates: start: 20061020, end: 20071023
  3. AVASTIN [Concomitant]
     Dosage: 15 MG/KG, IN THREE WEEKS
     Route: 042
     Dates: start: 20061020

REACTIONS (2)
  - DRUG TOXICITY [None]
  - NASAL SEPTUM PERFORATION [None]
